FAERS Safety Report 7285732-2 (Version None)
Quarter: 2011Q1

REPORT INFORMATION
  Report Type: 
  Country: None (occurrence: None)
  Receive Date: 20110210
  Receipt Date: 20110201
  Transmission Date: 20110831
  Serious: Yes (Hospitalization)
  Sender: FDA-Public Use
  Company Number: JP-ASTRAZENECA-2011SE06323

PATIENT
  Age: 66 Year
  Sex: Male

DRUGS (1)
  1. TENORMIN [Suspect]
     Dosage: DOSE UNKNOWN
     Route: 048

REACTIONS (2)
  - TACHYCARDIA [None]
  - PNEUMONIA [None]
